FAERS Safety Report 9259686 (Version 2)
Quarter: 2013Q2

REPORT INFORMATION
  Report Type: Report from Study
  Country: BE (occurrence: BE)
  Receive Date: 20130429
  Receipt Date: 20130510
  Transmission Date: 20140414
  Serious: Yes (Hospitalization, Other)
  Sender: FDA-Public Use
  Company Number: BE-ROCHE-1216117

PATIENT
  Age: 56 Year
  Sex: Male

DRUGS (10)
  1. BELATACEPT [Suspect]
     Indication: RENAL TRANSPLANT
     Dosage: DATEOF LAST DOSE: 12/FEB/2013
     Route: 042
     Dates: start: 20070222
  2. MYCOPHENOLATE MOFETIL [Suspect]
     Indication: RENAL TRANSPLANT
     Dosage: DAILY
     Route: 065
     Dates: start: 20070223
  3. METHYLPREDNISOLONE [Suspect]
     Indication: RENAL TRANSPLANT
     Route: 065
     Dates: start: 20070226
  4. CARDIOASPIRINE [Concomitant]
     Route: 065
     Dates: start: 20070620
  5. COVERSYL [Concomitant]
     Route: 065
     Dates: start: 20070719
  6. D-CURE [Concomitant]
     Route: 065
     Dates: start: 20100517
  7. LIPITOR [Concomitant]
     Route: 065
     Dates: start: 20070807
  8. LORAZEPAM [Concomitant]
  9. VALIXA [Concomitant]
  10. FOSAMAX [Concomitant]

REACTIONS (4)
  - Renal failure acute [Recovered/Resolved with Sequelae]
  - Tenosynovitis [Recovered/Resolved with Sequelae]
  - Joint swelling [Unknown]
  - Malaise [Unknown]
